FAERS Safety Report 20538094 (Version 3)
Quarter: 2023Q4

REPORT INFORMATION
  Report Type: Report from Study
  Country: US (occurrence: US)
  Receive Date: 20220302
  Receipt Date: 20231204
  Transmission Date: 20240109
  Serious: Yes (Other)
  Sender: FDA-Public Use
  Company Number: US-Ipsen Biopharmaceuticals, Inc.-2022-04971

PATIENT
  Age: 69 Year
  Sex: Female

DRUGS (1)
  1. SOMATULINE DEPOT [Suspect]
     Active Substance: LANREOTIDE ACETATE
     Indication: Carcinoid tumour of the small bowel
     Dosage: 120 MG EVERY 28 DAYS
     Route: 058
     Dates: start: 202011

REACTIONS (7)
  - Neuropathy peripheral [Unknown]
  - Hypoglycaemia [Recovering/Resolving]
  - Blood glucose abnormal [Unknown]
  - Arthralgia [Unknown]
  - Paraesthesia [Unknown]
  - Hiatus hernia [Unknown]
  - Arthritis [Not Recovered/Not Resolved]
